FAERS Safety Report 6119091-5 (Version None)
Quarter: 2009Q1

REPORT INFORMATION
  Report Type: 
  Country: None (occurrence: None)
  Receive Date: 20090316
  Receipt Date: 20090312
  Transmission Date: 20090719
  Serious: Yes (Death)
  Sender: FDA-Public Use
  Company Number: JP-JNJFOC-20090102365

PATIENT
  Sex: Male
  Weight: 70 kg

DRUGS (29)
  1. DUROTEP MT [Suspect]
     Dosage: THE PATIENT USED 100 UG/HR AND A 50 UG/HR MATIX PACHES.
     Route: 062
  2. DUROTEP MT [Suspect]
     Dosage: THE DOSE WAS STILL 150 UG/HR, USED 100 UG/HR RESERVOIR PATCH AND 50 UG/HR MATRIX PATCH
     Route: 062
  3. DUROTEP MT [Suspect]
     Route: 062
  4. DUROTEP MT [Suspect]
     Route: 062
  5. DUROTEP MT [Suspect]
     Route: 062
  6. DUROTEP MT [Suspect]
     Dosage: THE TOTAL DOSE WAS 150 UG/HR WHERE 50 UG/HR WAS MATRIX PATCH AND A 100 UG/HR WAS RESERVOIR PATCH.
     Route: 062
  7. DUROTEP MT [Suspect]
     Indication: DRUG USE FOR UNKNOWN INDICATION
     Route: 062
  8. GLYCEOL [Concomitant]
     Route: 042
  9. RINDERON [Concomitant]
     Route: 042
  10. GASTER [Concomitant]
     Route: 042
  11. HEPAFLUSH [Concomitant]
     Route: 042
  12. ROPION [Concomitant]
     Route: 042
  13. BFLUID [Concomitant]
     Route: 042
  14. OXINORM [Concomitant]
     Dosage: 5MG-70MG
     Route: 048
  15. ANPEC [Concomitant]
     Dosage: 20 MG-60MG
     Route: 054
  16. CRAVIT [Concomitant]
     Route: 048
  17. NOVAMIN [Concomitant]
     Route: 048
  18. FOIPAN [Concomitant]
     Route: 048
  19. SILECE [Concomitant]
     Route: 048
  20. ZYPREXA [Concomitant]
     Route: 048
  21. LAXOBERON [Concomitant]
     Route: 048
  22. GABAPEN [Concomitant]
     Route: 048
  23. SENIRAN [Concomitant]
     Route: 054
  24. SILECE [Concomitant]
     Route: 042
  25. MIRACLID [Concomitant]
     Dosage: 100,000 UNIT
     Route: 042
  26. DORMICUM [Concomitant]
     Route: 042
  27. ATARAX [Concomitant]
     Route: 042
  28. MORPHINE HYDROCHLORIDE [Concomitant]
     Dosage: 48MG-144MG/DAY
     Route: 058
  29. FENTANYL [Concomitant]
     Route: 062

REACTIONS (4)
  - DISEASE PROGRESSION [None]
  - HAEMORRHAGE SUBCUTANEOUS [None]
  - PRODUCT QUALITY ISSUE [None]
  - WRONG TECHNIQUE IN DRUG USAGE PROCESS [None]
